FAERS Safety Report 22045785 (Version 1)
Quarter: 2023Q1

REPORT INFORMATION
  Report Type: Report from Study
  Country: CA (occurrence: CA)
  Receive Date: 20230228
  Receipt Date: 20230228
  Transmission Date: 20230417
  Serious: Yes (Other)
  Sender: FDA-Public Use
  Company Number: CA-JNJFOC-20220747684

PATIENT
  Age: 59 Year
  Sex: Male

DRUGS (21)
  1. SELEXIPAG [Suspect]
     Active Substance: SELEXIPAG
     Indication: Pulmonary hypertension
     Route: 048
     Dates: start: 20220719
  2. SELEXIPAG [Suspect]
     Active Substance: SELEXIPAG
     Route: 048
     Dates: start: 20220721
  3. SELEXIPAG [Suspect]
     Active Substance: SELEXIPAG
     Route: 048
     Dates: start: 20220722
  4. SELEXIPAG [Suspect]
     Active Substance: SELEXIPAG
     Dosage: 200 MCG TID?200MCG IN THE MORNING, THEN LUNCH TIME AND EVENING TIME
     Route: 048
     Dates: start: 20220802
  5. SELEXIPAG [Suspect]
     Active Substance: SELEXIPAG
     Route: 048
     Dates: start: 20220821
  6. SELEXIPAG [Suspect]
     Active Substance: SELEXIPAG
     Dosage: 400 MCG IN AM AND 600 MCG IN PM
     Route: 048
     Dates: start: 20220927
  7. SELEXIPAG [Suspect]
     Active Substance: SELEXIPAG
     Route: 048
     Dates: start: 20221103
  8. SELEXIPAG [Suspect]
     Active Substance: SELEXIPAG
     Dosage: 600 MCG IN THE MORNING AND 800 MCG IN THE AFTERNOON
     Route: 048
     Dates: start: 20221128
  9. SELEXIPAG [Suspect]
     Active Substance: SELEXIPAG
     Route: 048
     Dates: start: 20220124
  10. AZATHIOPRINE [Concomitant]
     Active Substance: AZATHIOPRINE
  11. PREDNISONE [Concomitant]
     Active Substance: PREDNISONE
  12. SILDENAFIL [Concomitant]
     Active Substance: SILDENAFIL
  13. ERGOCALCIFEROL [Concomitant]
     Active Substance: ERGOCALCIFEROL
  14. MAGNESIUM [Concomitant]
     Active Substance: MAGNESIUM
  15. CARVEDILOL [Concomitant]
     Active Substance: CARVEDILOL
  16. FUROSEMIDE [Concomitant]
     Active Substance: FUROSEMIDE
  17. PERINDOPRIL [Concomitant]
     Active Substance: PERINDOPRIL
  18. RIVAROXABAN [Concomitant]
     Active Substance: RIVAROXABAN
  19. SULFAMETHOXAZOLE [Concomitant]
     Active Substance: SULFAMETHOXAZOLE
  20. MYCOPHENOLIC ACID [Concomitant]
     Active Substance: MYCOPHENOLIC ACID
  21. RABEPRAZOLE [Concomitant]
     Active Substance: RABEPRAZOLE

REACTIONS (11)
  - Dyspnoea [Not Recovered/Not Resolved]
  - Oedema peripheral [Recovering/Resolving]
  - Headache [Recovering/Resolving]
  - Off label use [Unknown]
  - Nausea [Recovered/Resolved]
  - Decreased appetite [Recovered/Resolved]
  - Malaise [Recovered/Resolved]
  - Diarrhoea [Not Recovered/Not Resolved]
  - Myalgia [Recovering/Resolving]
  - Fluid retention [Unknown]
  - Cough [Recovered/Resolved]

NARRATIVE: CASE EVENT DATE: 20220719
